FAERS Safety Report 6154223-4 (Version None)
Quarter: 2009Q2

REPORT INFORMATION
  Report Type: 
  Country: None (occurrence: None)
  Receive Date: 20090414
  Receipt Date: 20071002
  Transmission Date: 20091009
  Serious: No
  Sender: FDA-Public Use
  Company Number: US-ASTRAZENECA-2006UW22582

PATIENT
  Age: 13120 Day
  Sex: Female
  Weight: 122.5 kg

DRUGS (16)
  1. SEROQUEL [Suspect]
     Indication: DEPRESSION
     Route: 048
     Dates: start: 20050505, end: 20050101
  2. SEROQUEL [Suspect]
     Indication: ANXIETY DISORDER
     Route: 048
     Dates: start: 20050505, end: 20050101
  3. ZOCOR [Concomitant]
  4. GEMFIBROZIL [Concomitant]
  5. TRIAMTERENE [Concomitant]
  6. CLONAZEPAM AM [Concomitant]
  7. HYDROCODONE BITARTRATE [Concomitant]
  8. WELLBUTRIN [Concomitant]
  9. NOVOLIN N [Concomitant]
  10. NOVOLIN R [Concomitant]
  11. LODINE [Concomitant]
  12. ESGIC [Concomitant]
  13. NALEX-A [Concomitant]
  14. DYAZIDE [Concomitant]
  15. ACCUPRIL [Concomitant]
  16. XANAX [Concomitant]

REACTIONS (3)
  - DIABETES MELLITUS [None]
  - RED CELL DISTRIBUTION WIDTH INCREASED [None]
  - WHITE BLOOD CELL COUNT INCREASED [None]
